FAERS Safety Report 18329161 (Version 1)
Quarter: 2020Q3

REPORT INFORMATION
  Report Type: Spontaneous
  Country: US (occurrence: US)
  Receive Date: 20200929
  Receipt Date: 20200929
  Transmission Date: 20201103
  Serious: No
  Sender: FDA-Public Use
  Company Number: None

PATIENT
  Age: 44 Year
  Sex: Female
  Weight: 69.75 kg

DRUGS (3)
  1. PHENTERMINE. [Concomitant]
     Active Substance: PHENTERMINE
  2. MULTIVITAMIN [Concomitant]
     Active Substance: VITAMINS
  3. GENTAMICIN SULFATE OPHTHALMIC SOLUTION USP 0.3% [Suspect]
     Active Substance: GENTAMICIN SULFATE
     Indication: HORDEOLUM
     Dosage: ?          QUANTITY:1 DROP(S);?
     Route: 047
     Dates: start: 20200924, end: 20200926

REACTIONS (5)
  - Eye discharge [None]
  - Eye pruritus [None]
  - Eye pain [None]
  - Eye irritation [None]
  - Ocular hyperaemia [None]

NARRATIVE: CASE EVENT DATE: 20200924
